FAERS Safety Report 8836102 (Version 1)
Quarter: 2012Q4

REPORT INFORMATION
  Report Type: 
  Country: US (occurrence: US)
  Receive Date: 20121011
  Receipt Date: 20121011
  Transmission Date: 20130627
  Serious: No
  Sender: FDA-Public Use
  Company Number: US-B.I. PHARMACEUTICALS,INC./RIDGEFIELD-2012-BP-23816BP

PATIENT
  Sex: Female

DRUGS (1)
  1. FLOMAX CAPSULES [Suspect]
     Indication: NEPHROLITHIASIS
     Route: 048

REACTIONS (1)
  - Uterine haemorrhage [Unknown]
